FAERS Safety Report 8538398-5 (Version None)
Quarter: 2012Q3

REPORT INFORMATION
  Report Type: 
  Country: None (occurrence: None)
  Receive Date: 20120726
  Receipt Date: 20120724
  Transmission Date: 20120928
  Serious: No
  Sender: FDA-Public Use
  Company Number: US-PFIZER INC-2012179129

PATIENT
  Sex: Female

DRUGS (3)
  1. LYRICA [Suspect]
     Indication: NEUROPATHY PERIPHERAL
     Dosage: UNK
  2. LYRICA [Suspect]
     Indication: NEUROMA
  3. LYRICA [Suspect]
     Indication: HYPOAESTHESIA

REACTIONS (3)
  - BACK PAIN [None]
  - PAIN [None]
  - JOINT SWELLING [None]
